FAERS Safety Report 10049841 (Version 2)
Quarter: 2014Q2

REPORT INFORMATION
  Report Type: Spontaneous
  Country: US (occurrence: US)
  Receive Date: 20140401
  Receipt Date: 20140401
  Transmission Date: 20141212
  Serious: Yes (Hospitalization)
  Sender: FDA-Public Use
  Company Number: US-SA-POMP-1002359

PATIENT
  Age: 16 Year
  Sex: Female
  Weight: 50.6 kg

DRUGS (10)
  1. LUMIZYME [Suspect]
     Indication: GLYCOGEN STORAGE DISEASE TYPE II
     Dosage: 17.8 MG/KG, Q2W
     Route: 042
     Dates: start: 20101231
  2. LUMIZYME [Suspect]
     Indication: GLYCOGEN STORAGE DISEASE TYPE II
     Dosage: 19.8 MG/KG, Q2W
     Route: 042
     Dates: start: 2012
  3. SERTRALINE HYDROCHLORIDE [Concomitant]
     Dosage: 50 MG, QD
     Route: 065
  4. AMITRIPTYLINE HYDROCHLORIDE [Concomitant]
     Dosage: 50 MG, QD
     Route: 065
  5. EPHEDRINE [Concomitant]
     Dosage: UNK
     Route: 065
  6. GABAPENTIN [Concomitant]
     Dosage: 300 MG, TID
     Route: 065
  7. CELECOXIB [Concomitant]
     Dosage: 100 MG, BID
     Route: 065
  8. DIPHENHYDRAMINE HYDROCHLORIDE [Concomitant]
     Indication: PREMEDICATION
     Dosage: 50 MG, UNK
     Route: 048
  9. METHYLPREDNISOLONE SODIUM SUCCINATE [Concomitant]
     Indication: PREMEDICATION
     Dosage: 40 MG, UNK
     Route: 042
  10. IBUPROFEN [Concomitant]
     Indication: PREMEDICATION
     Dosage: 400 MG, UNK
     Route: 048

REACTIONS (6)
  - Musculoskeletal chest pain [Not Recovered/Not Resolved]
  - Pain in extremity [Not Recovered/Not Resolved]
  - Muscle spasms [Not Recovered/Not Resolved]
  - Myalgia [Not Recovered/Not Resolved]
  - Paraesthesia [Not Recovered/Not Resolved]
  - Blood creatine phosphokinase increased [Unknown]
